FAERS Safety Report 6198987-2 (Version None)
Quarter: 2009Q2

REPORT INFORMATION
  Report Type: 
  Country: None (occurrence: None)
  Receive Date: 20090522
  Receipt Date: 20090513
  Transmission Date: 20091009
  Serious: Yes (Other)
  Sender: FDA-Public Use
  Company Number: US-ELI_LILLY_AND_COMPANY-US200905002716

PATIENT
  Sex: Male

DRUGS (4)
  1. HUMALOG [Suspect]
     Dates: start: 20010101
  2. HUMALOG [Suspect]
  3. HUMULIN N [Suspect]
     Dosage: UNK, UNK
     Dates: start: 20010101
  4. HUMULIN N [Suspect]
     Dosage: UNK, UNKNOWN

REACTIONS (5)
  - EYE DISORDER [None]
  - NEUROPATHY PERIPHERAL [None]
  - RENAL DISORDER [None]
  - SENSORY DISTURBANCE [None]
  - VISUAL ACUITY REDUCED [None]
